APPROVED DRUG PRODUCT: ESTRADIOL
Active Ingredient: ESTRADIOL
Strength: 2MG
Dosage Form/Route: TABLET;ORAL
Application: A217334 | Product #003 | TE Code: AB
Applicant: NOVITIUM PHARMA LLC
Approved: Sep 6, 2023 | RLD: No | RS: No | Type: RX